FAERS Safety Report 13469620 (Version 4)
Quarter: 2017Q4

REPORT INFORMATION
  Report Type: Report from Study
  Country: None (occurrence: AR)
  Receive Date: 20170422
  Receipt Date: 20171208
  Transmission Date: 20180320
  Serious: Yes (Hospitalization)
  Sender: FDA-Public Use
  Company Number: AR-ABBVIE-17K-007-1873116-00

PATIENT
  Sex: Female

DRUGS (1)
  1. HUMIRA [Suspect]
     Active Substance: ADALIMUMAB
     Indication: CROHN^S DISEASE
     Route: 058
     Dates: start: 20160314, end: 201702

REACTIONS (4)
  - Cervical incompetence [Unknown]
  - Exposure during pregnancy [Unknown]
  - Normal newborn [Unknown]
  - Premature labour [Recovering/Resolving]

NARRATIVE: CASE EVENT DATE: 2017
